FAERS Safety Report 6758835-6 (Version None)
Quarter: 2010Q2

REPORT INFORMATION
  Report Type: 
  Country: None (occurrence: None)
  Receive Date: 20100607
  Receipt Date: 20100531
  Transmission Date: 20101027
  Serious: Yes (Disabling)
  Sender: FDA-Public Use
  Company Number: GXKR2010PL05392

PATIENT
  Age: 11 Year
  Sex: Female

DRUGS (3)
  1. METHOTREXATE [Suspect]
     Indication: OSTEOSARCOMA METASTATIC
     Dosage: UNK
     Route: 065
     Dates: end: 20050401
  2. ETOPOSIDE [Suspect]
     Indication: OSTEOSARCOMA METASTATIC
     Dosage: UNK
     Route: 065
     Dates: end: 20050401
  3. IFOSFAMIDE [Suspect]
     Indication: OSTEOSARCOMA METASTATIC

REACTIONS (11)
  - ANAEMIA [None]
  - ARTERIOVENOUS FISTULA [None]
  - FANCONI SYNDROME [None]
  - GLYCOSURIA [None]
  - HAEMATURIA [None]
  - HAEMODIALYSIS [None]
  - HYPOKALAEMIA [None]
  - HYPOMAGNESAEMIA [None]
  - PROTEINURIA [None]
  - RENAL FAILURE CHRONIC [None]
  - RENAL TRANSPLANT [None]
